FAERS Safety Report 8044341-8 (Version None)
Quarter: 2012Q1

REPORT INFORMATION
  Report Type: 
  Country: None (occurrence: None)
  Receive Date: 20120113
  Receipt Date: 20120102
  Transmission Date: 20120608
  Serious: Yes (Other)
  Sender: FDA-Public Use
  Company Number: FR-SANOFI-AVENTIS-2012SA000479

PATIENT
  Age: 68 Year
  Sex: Female

DRUGS (6)
  1. ZOLPIDEM [Suspect]
     Route: 048
  2. MEDIATENSYL [Suspect]
     Route: 048
  3. AMLODIPINE BESYLATE [Suspect]
     Route: 048
  4. BISOPROLOL FUMARATE AND HYDROCHLOROTHIAZIDE [Suspect]
     Dosage: 10 MG / 6.25 MG.
     Route: 048
  5. ALENDRONATE SODIUM [Suspect]
     Route: 048
  6. ACETAMINOPHEN [Suspect]
     Route: 048

REACTIONS (1)
  - THROMBOCYTOPENIA [None]
